FAERS Safety Report 12601563 (Version 1)
Quarter: 2016Q3

REPORT INFORMATION
  Report Type: Spontaneous
  Country: CA (occurrence: CA)
  Receive Date: 20160728
  Receipt Date: 20160728
  Transmission Date: 20161109
  Serious: Yes (Hospitalization, Other)
  Sender: FDA-Public Use
  Company Number: CA-JAZZ-2015-CA-022922

PATIENT
  Age: 6 Year
  Sex: Male
  Weight: 21 kg

DRUGS (5)
  1. ASPARAGINASE [Suspect]
     Active Substance: ASPARAGINASE
     Indication: LEUKAEMIA
     Dosage: 2100 U, SINGLE
     Route: 042
  2. DEXAMETHASONE. [Concomitant]
     Active Substance: DEXAMETHASONE
     Indication: PRODUCT USED FOR UNKNOWN INDICATION
  3. LACTULOSE AL [Concomitant]
     Active Substance: LACTULOSE
     Indication: PRODUCT USED FOR UNKNOWN INDICATION
  4. SENNOSIDES A+B [Concomitant]
     Active Substance: SENNOSIDES A AND B
     Indication: PRODUCT USED FOR UNKNOWN INDICATION
  5. RANITIDINE. [Concomitant]
     Active Substance: RANITIDINE
     Indication: PRODUCT USED FOR UNKNOWN INDICATION

REACTIONS (4)
  - Cough [Recovered/Resolved]
  - Eyelid oedema [Recovered/Resolved]
  - Oropharyngeal pain [Recovered/Resolved]
  - Ocular hyperaemia [Recovered/Resolved]
